FAERS Safety Report 20569679 (Version 1)
Quarter: 2022Q1

REPORT INFORMATION
  Report Type: Spontaneous
  Country: ES (occurrence: ES)
  Receive Date: 20220309
  Receipt Date: 20220309
  Transmission Date: 20220424
  Serious: Yes (Hospitalization, Other)
  Sender: FDA-Public Use
  Company Number: ES-AEMPS-318918

PATIENT
  Age: 54 Year
  Sex: Male

DRUGS (6)
  1. EPLERENONE [Interacting]
     Active Substance: EPLERENONE
     Indication: Cardiac failure congestive
     Dosage: 25 MILLIGRAM
     Route: 048
     Dates: start: 20140506, end: 20171108
  2. FUROSEMIDE [Interacting]
     Active Substance: FUROSEMIDE
     Indication: Cardiac failure congestive
     Dosage: 80 MILLIGRAM, ONCE A DAY
     Route: 048
     Dates: start: 20140506, end: 20171108
  3. DEXKETOPROFEN TROMETAMOL [Interacting]
     Active Substance: DEXKETOPROFEN TROMETAMOL
     Indication: Product used for unknown indication
     Dosage: UNK
     Route: 048
     Dates: start: 20171028, end: 20171108
  4. ENTRESTO [Interacting]
     Active Substance: SACUBITRIL\VALSARTAN
     Indication: Essential hypertension
     Dosage: 48 MILLIGRAM, ONCE A DAY
     Route: 048
     Dates: start: 20161121, end: 20171108
  5. TROMALYT [Concomitant]
     Active Substance: ASPIRIN
     Indication: Ischaemic cardiomyopathy
     Dosage: 150 MILLIGRAM, ONCE A DAY
     Route: 048
     Dates: start: 20160421
  6. ATORVASTATIN CALCIUM\EZETIMIBE [Concomitant]
     Active Substance: ATORVASTATIN CALCIUM\EZETIMIBE
     Indication: Dyslipidaemia
     Dosage: 10 MILLIGRAM, ONCE A DAY
     Route: 048
     Dates: start: 20161010

REACTIONS (2)
  - Acute kidney injury [Recovered/Resolved]
  - Hyperkalaemia [Recovered/Resolved]

NARRATIVE: CASE EVENT DATE: 20171106
